FAERS Safety Report 6608013-6 (Version None)
Quarter: 2010Q1

REPORT INFORMATION
  Report Type: 
  Country: None (occurrence: None)
  Receive Date: 20100301
  Receipt Date: 20100219
  Transmission Date: 20100710
  Serious: Yes (Other)
  Sender: FDA-Public Use
  Company Number: US-AMGEN-QUU389728

PATIENT
  Sex: Female
  Weight: 146.2 kg

DRUGS (4)
  1. NPLATE [Suspect]
     Indication: IDIOPATHIC THROMBOCYTOPENIC PURPURA
     Dates: start: 20090629, end: 20090713
  2. CORTICOSTEROIDS [Concomitant]
     Dates: start: 20071101
  3. IMMU-G [Concomitant]
  4. PREDNISONE [Concomitant]

REACTIONS (2)
  - DRUG INEFFECTIVE [None]
  - LIVER FUNCTION TEST ABNORMAL [None]
